FAERS Safety Report 25595345 (Version 1)
Quarter: 2025Q3

REPORT INFORMATION
  Report Type: Spontaneous
  Country: EU (occurrence: EU)
  Receive Date: 20250723
  Receipt Date: 20250723
  Transmission Date: 20251021
  Serious: Yes (Other)
  Sender: SANOFI AVENTIS
  Company Number: EU-DialogSolutions-SAAVPROD-PI801747-C1

PATIENT
  Sex: Female

DRUGS (1)
  1. ALEMTUZUMAB [Suspect]
     Active Substance: ALEMTUZUMAB
     Dates: start: 2016

REACTIONS (3)
  - Autoimmune arthritis [Unknown]
  - Rheumatoid arthritis [Unknown]
  - Polyarthritis [Unknown]

NARRATIVE: CASE EVENT DATE: 20170301
